FAERS Safety Report 9542301 (Version 1)
Quarter: 2013Q2

REPORT INFORMATION
  Report Type: Spontaneous
  Country: US (occurrence: None)
  Receive Date: 20130524
  Receipt Date: 20130524
  Transmission Date: 20140414
  Serious: No
  Sender: FDA-Public Use
  Company Number: PHEH2013US003880

PATIENT
  Age: 39 Year
  Sex: Female
  Weight: 77.1 kg

DRUGS (2)
  1. GILENYA (FINGOLIMOD) CAPSULE, 0.5MG [Suspect]
     Route: 048
  2. CYANOCOBALAMIN (CYANOCOBALAMIN) [Concomitant]

REACTIONS (6)
  - Fatigue [None]
  - Chest pain [None]
  - Palpitations [None]
  - Asthenia [None]
  - Diarrhoea [None]
  - Dizziness [None]
